FAERS Safety Report 5180271-7 (Version None)
Quarter: 2006Q4

REPORT INFORMATION
  Report Type: 
  Country: None (occurrence: None)
  Receive Date: 20061219
  Receipt Date: 20060916
  Transmission Date: 20070319
  Serious: No
  Sender: FDA-Public Use
  Company Number: US-AMGEN-KDL193953

PATIENT
  Sex: Female

DRUGS (1)
  1. ENBREL [Suspect]
     Indication: PSORIATIC ARTHROPATHY
     Route: 058
     Dates: start: 20030501

REACTIONS (6)
  - ABASIA [None]
  - ABDOMINAL PAIN UPPER [None]
  - CELLULITIS [None]
  - MIGRAINE [None]
  - PAIN [None]
  - SWELLING [None]
